FAERS Safety Report 18862916 (Version 2)
Quarter: 2021Q1

REPORT INFORMATION
  Report Type: Spontaneous
  Country: JP (occurrence: JP)
  Receive Date: 20210208
  Receipt Date: 20210305
  Transmission Date: 20210420
  Serious: Yes (Other)
  Sender: FDA-Public Use
  Company Number: JP-SA-2021SA039199

PATIENT
  Age: 56 Year
  Sex: Female

DRUGS (3)
  1. LEVOCETIRIZINE [Suspect]
     Active Substance: LEVOCETIRIZINE
     Indication: PALMOPLANTAR PUSTULOSIS
     Dosage: 5 MG, QD
     Route: 048
     Dates: start: 20201201, end: 20201214
  2. BIOTIN [Concomitant]
     Active Substance: BIOTIN
     Dosage: UNK
     Dates: start: 20201201
  3. L?CYSTEINE [CYSTEINE] [Concomitant]
     Dosage: UNK
     Dates: start: 20201201

REACTIONS (2)
  - Erythema multiforme [Recovering/Resolving]
  - Product use issue [Unknown]

NARRATIVE: CASE EVENT DATE: 20201201
